FAERS Safety Report 9820803 (Version 2)
Quarter: 2014Q1

REPORT INFORMATION
  Report Type: Spontaneous
  Country: US (occurrence: US)
  Receive Date: 20140116
  Receipt Date: 20140219
  Transmission Date: 20141002
  Serious: No
  Sender: FDA-Public Use
  Company Number: US-PFIZER INC-2014013891

PATIENT
  Age: 64 Year
  Sex: Male
  Weight: 90.7 kg

DRUGS (6)
  1. CELEBREX [Suspect]
     Indication: ARTHRALGIA
     Dosage: 200 MG ONE DAILY, AS NEEDED
     Route: 048
     Dates: end: 20140112
  2. CELEBREX [Suspect]
     Indication: ARTHRALGIA
  3. CELEBREX [Suspect]
     Indication: OSTEOARTHRITIS
  4. VITAMIN D [Concomitant]
     Dosage: UNK
  5. CRESTOR [Concomitant]
     Dosage: UNK
  6. MICARDIS [Concomitant]
     Dosage: UNK

REACTIONS (3)
  - Urticaria [Recovered/Resolved with Sequelae]
  - Lip swelling [Recovered/Resolved with Sequelae]
  - Eyelid oedema [Recovered/Resolved with Sequelae]
